FAERS Safety Report 4697003-9 (Version None)
Quarter: 2005Q2

REPORT INFORMATION
  Report Type: 
  Country: None (occurrence: None)
  Receive Date: 20050622
  Receipt Date: 20050411
  Transmission Date: 20051028
  Serious: Yes (Hospitalization)
  Sender: FDA-Public Use
  Company Number: US-AMGEN-KDL126601

PATIENT
  Sex: Female

DRUGS (5)
  1. PROCRIT [Suspect]
     Indication: ANAEMIA
  2. TOPROL-XL [Concomitant]
  3. RESERPINE [Concomitant]
  4. LASIX [Concomitant]
  5. ZOCOR [Concomitant]

REACTIONS (1)
  - PULMONARY HYPERTENSION [None]
